FAERS Safety Report 11080168 (Version 13)
Quarter: 2018Q4

REPORT INFORMATION
  Report Type: Report from Study
  Country: US (occurrence: US)
  Receive Date: 20150430
  Receipt Date: 20181022
  Transmission Date: 20190204
  Serious: Yes (Death, Hospitalization, Other)
  Sender: FDA-Public Use
  Company Number: US-ACTELION-A-US2015-116839

PATIENT
  Age: 60 Year
  Sex: Female
  Weight: 82.99 kg

DRUGS (9)
  1. ADCIRCA [Concomitant]
     Active Substance: TADALAFIL
  2. ATIVAN [Concomitant]
     Active Substance: LORAZEPAM
  3. HEPARIN [Concomitant]
     Active Substance: HEPARIN SODIUM
     Dosage: UNK
     Dates: start: 20150419
  4. NOVOLOG [Concomitant]
     Active Substance: INSULIN ASPART
     Dosage: UNK
     Dates: start: 20150419
  5. K PHOS NEUTRAL [Concomitant]
     Active Substance: POTASSIUM PHOSPHATE, MONOBASIC\SODIUM PHOSPHATE, DIBASIC, ANHYDROUS\SODIUM PHOSPHATE, MONOBASIC, MONOHYDRATE
     Dosage: UNK
     Dates: start: 20150419
  6. OPSUMIT [Suspect]
     Active Substance: MACITENTAN
     Indication: PORTOPULMONARY HYPERTENSION
     Dosage: 10 MG, QD
     Route: 048
     Dates: start: 20150331
  7. OPSUMIT [Suspect]
     Active Substance: MACITENTAN
     Dosage: 10 MG, QD
     Route: 048
  8. BUMEX [Concomitant]
     Active Substance: BUMETANIDE
     Dosage: UNK
     Dates: start: 20150419
  9. KLOR-CON [Concomitant]
     Active Substance: POTASSIUM CHLORIDE
     Dosage: UNK
     Dates: start: 20150419

REACTIONS (22)
  - Liver disorder [Unknown]
  - Weight increased [Recovered/Resolved with Sequelae]
  - Abdominal pain [Recovered/Resolved]
  - Syncope [Unknown]
  - Death [Fatal]
  - Asthenia [Recovered/Resolved with Sequelae]
  - Pulmonary arterial pressure increased [Unknown]
  - Blood magnesium decreased [Unknown]
  - Fluid overload [Recovered/Resolved with Sequelae]
  - Fluid retention [Recovered/Resolved with Sequelae]
  - Mental status changes [Recovered/Resolved with Sequelae]
  - Abdominal distension [Recovered/Resolved]
  - Blood sodium decreased [Unknown]
  - Generalised oedema [Recovered/Resolved with Sequelae]
  - Gastric disorder [Unknown]
  - Pulmonary oedema [Recovered/Resolved with Sequelae]
  - Orthopnoea [Recovered/Resolved with Sequelae]
  - Blood bilirubin increased [Unknown]
  - Blood glucose increased [Unknown]
  - Dyspnoea [Recovered/Resolved with Sequelae]
  - Dyspnoea paroxysmal nocturnal [Recovered/Resolved with Sequelae]
  - Swelling [Recovered/Resolved with Sequelae]

NARRATIVE: CASE EVENT DATE: 20150418
